FAERS Safety Report 22181672 (Version 2)
Quarter: 2023Q2

REPORT INFORMATION
  Report Type: Report from Study
  Country: CN (occurrence: CN)
  Receive Date: 20230406
  Receipt Date: 20230414
  Transmission Date: 20230721
  Serious: Yes (Death, Life-Threatening)
  Sender: FDA-Public Use
  Company Number: CN-PFIZER INC-PV202300062340

PATIENT
  Age: 54 Year
  Sex: Male
  Weight: 60 kg

DRUGS (17)
  1. CYTARABINE [Suspect]
     Active Substance: CYTARABINE
     Indication: Acute myeloid leukaemia
     Dosage: 1700 MG, 1X/DAY
     Route: 041
     Dates: start: 20230315, end: 20230319
  2. INVESTIGATIONAL PRODUCT [Suspect]
     Active Substance: INVESTIGATIONAL PRODUCT
     Indication: Acute myeloid leukaemia
     Dosage: UNK, 1X/DAY
     Route: 041
     Dates: start: 20230314, end: 20230314
  3. INVESTIGATIONAL PRODUCT [Suspect]
     Active Substance: INVESTIGATIONAL PRODUCT
     Dosage: UNK, Q12H
     Route: 041
     Dates: start: 20230315, end: 20230321
  4. MITOXANTRONE [Suspect]
     Active Substance: MITOXANTRONE HYDROCHLORIDE
     Indication: Acute myeloid leukaemia
     Dosage: 10.2 MG, 1X/DAY (25/12.5MG/ML)
     Route: 041
     Dates: start: 20230315, end: 20230319
  5. ETOPOSIDE [Suspect]
     Active Substance: ETOPOSIDE
     Indication: Acute myeloid leukaemia
     Dosage: 170 MG, 1X/DAY (0.1/5 G/ML)
     Route: 041
     Dates: start: 20230315, end: 20230317
  6. CILASTATIN SODIUM\IMIPENEM [Concomitant]
     Active Substance: CILASTATIN SODIUM\IMIPENEM
     Dosage: UNK
     Dates: start: 20230319, end: 20230330
  7. BACILLUS SUBTILIS/ENTEROCOCCUS FAECIUM [Concomitant]
     Dosage: UNK
     Dates: start: 20230321, end: 20230330
  8. MONTMORILLONITE [Concomitant]
     Active Substance: MONTMORILLONITE
     Dosage: POWDER
     Dates: start: 20230322, end: 20230330
  9. OMEPRAZOLE SODIUM [Concomitant]
     Active Substance: OMEPRAZOLE SODIUM
     Dosage: UNK
     Dates: start: 20230323, end: 20230330
  10. SODIUM CHLORIDE [Concomitant]
     Active Substance: SODIUM CHLORIDE
     Dosage: UNK
     Dates: start: 20230327, end: 20230330
  11. AMBROXOL HYDROCHLORIDE [Concomitant]
     Active Substance: AMBROXOL HYDROCHLORIDE
     Dosage: UNK
     Dates: start: 20230328, end: 20230330
  12. BUDESONIDE [Concomitant]
     Active Substance: BUDESONIDE
     Dosage: SUSPENSION
     Dates: start: 20230328, end: 20230330
  13. TIGECYCLINE [Concomitant]
     Active Substance: TIGECYCLINE
     Dosage: UNK
     Dates: start: 20230328, end: 20230330
  14. DEXAMETHASONE SODIUM PHOSPHATE [Concomitant]
     Active Substance: DEXAMETHASONE SODIUM PHOSPHATE
     Dosage: UNK
     Dates: start: 20230328, end: 20230330
  15. BICYCLOL [Concomitant]
     Active Substance: BICYCLOL
     Dosage: UNK
     Dates: start: 20230329
  16. MAGNESIUM ISOGLYCYRRHETATE [Concomitant]
     Dosage: UNK
     Dates: start: 20230329
  17. METHYLPREDNISOLONE SODIUM SUCCINATE [Concomitant]
     Active Substance: METHYLPREDNISOLONE SODIUM SUCCINATE
     Dosage: UNK
     Dates: start: 20230319, end: 20230319

REACTIONS (2)
  - Septic shock [Fatal]
  - Fungal sepsis [Fatal]

NARRATIVE: CASE EVENT DATE: 20230328
